FAERS Safety Report 8862326 (Version 2)
Quarter: 2012Q4

REPORT INFORMATION
  Report Type: 
  Country: JP (occurrence: JP)
  Receive Date: 20121026
  Receipt Date: 20121221
  Transmission Date: 20130627
  Serious: Yes (Life-Threatening, Hospitalization)
  Sender: FDA-Public Use
  Company Number: JP-BAYER-2012-095170

PATIENT
  Age: 67 Year
  Sex: Male
  Weight: 42 kg

DRUGS (6)
  1. NEXAVAR [Suspect]
     Indication: RENAL CELL CARCINOMA
     Dosage: Daily dose 800 mg
     Route: 048
     Dates: start: 20120703, end: 20120717
  2. NEXAVAR [Suspect]
     Indication: RENAL CELL CARCINOMA
     Dosage: Daily dose 400 mg
     Route: 048
     Dates: start: 20120727, end: 20120829
  3. TRANSAMIN [Suspect]
     Indication: PAIN PHARYNX
     Dosage: Daily dose 750 mg
     Route: 048
     Dates: start: 20120816, end: 20120822
  4. AMLODIN [Concomitant]
     Indication: HYPERTENSION
     Dosage: Daily dose 5 mg
     Route: 048
     Dates: start: 20120604
  5. BLOPRESS [Concomitant]
     Indication: HYPERTENSION
     Dosage: Daily dose 4 mg
     Route: 048
     Dates: start: 20120816, end: 20120829
  6. DEXALTIN [Concomitant]
     Indication: STOMATITIS
     Dosage: UNK
     Route: 061
     Dates: start: 20120816, end: 20120822

REACTIONS (4)
  - Angina pectoris [Recovering/Resolving]
  - Decreased appetite [Recovered/Resolved]
  - Dehydration [Recovered/Resolved]
  - Renal failure acute [Recovered/Resolved]
